FAERS Safety Report 8887679 (Version 1)
Quarter: 2012Q4

REPORT INFORMATION
  Report Type: Spontaneous
  Country: US (occurrence: None)
  Receive Date: 20121101
  Receipt Date: 20121101
  Transmission Date: 20130627
  Serious: Yes (Other)
  Sender: FDA-Public Use
  Company Number: None

PATIENT
  Age: 24 Year
  Sex: Female
  Weight: 49.9 kg

DRUGS (2)
  1. XYZAL [Suspect]
     Indication: SINUS DISORDER
     Dosage: over 3 years
  2. LEVOCETIRIZINE [Suspect]
     Dosage: r 3 years

REACTIONS (16)
  - Drug withdrawal syndrome [None]
  - Headache [None]
  - Discomfort [None]
  - Anxiety [None]
  - Depression [None]
  - Pruritus [None]
  - Urticaria [None]
  - Rash [None]
  - Irritability [None]
  - Nausea [None]
  - Oropharyngeal pain [None]
  - Vertigo [None]
  - Sinus disorder [None]
  - Dry skin [None]
  - Erythema [None]
  - Ocular hyperaemia [None]
